FAERS Safety Report 13814118 (Version 1)
Quarter: 2017Q3

REPORT INFORMATION
  Report Type: Spontaneous
  Country: FR (occurrence: FR)
  Receive Date: 20170731
  Receipt Date: 20170731
  Transmission Date: 20171127
  Serious: Yes (Other)
  Sender: FDA-Public Use
  Company Number: FR-AMGEN-FRASP2017112969

PATIENT
  Age: 57 Year
  Sex: Male

DRUGS (5)
  1. FOLINIC ACID [Suspect]
     Active Substance: LEUCOVORIN
     Indication: COLORECTAL CANCER
     Dosage: UNK
     Route: 065
     Dates: start: 20120601, end: 201211
  2. VECTIBIX [Suspect]
     Active Substance: PANITUMUMAB
     Indication: COLORECTAL CANCER
     Dosage: 360 MG, Q2WK
     Route: 042
     Dates: start: 20120601, end: 20121031
  3. OXALIPLATIN. [Suspect]
     Active Substance: OXALIPLATIN
     Dosage: REDUCTION IN 20 PERCENT (%) DOSE
     Route: 042
     Dates: start: 20121114, end: 201211
  4. FLUOROURACIL. [Suspect]
     Active Substance: FLUOROURACIL
     Indication: COLORECTAL CANCER
     Dosage: 2324 MG, Q2WK
     Route: 042
     Dates: start: 20120601, end: 201211
  5. OXALIPLATIN. [Suspect]
     Active Substance: OXALIPLATIN
     Indication: COLORECTAL CANCER
     Dosage: 10 MG, Q2WK
     Route: 042
     Dates: start: 20120601, end: 20121031

REACTIONS (1)
  - Hyperthermia [Recovered/Resolved]

NARRATIVE: CASE EVENT DATE: 20120601
